FAERS Safety Report 7379604-2 (Version None)
Quarter: 2011Q1

REPORT INFORMATION
  Report Type: 
  Country: None (occurrence: None)
  Receive Date: 20110318
  Receipt Date: 20110308
  Transmission Date: 20110831
  Serious: Yes (Other)
  Sender: FDA-Public Use
  Company Number: US-ACCORD-008396

PATIENT
  Age: 79 Year
  Sex: Female

DRUGS (5)
  1. SPIRONOLACTONE [Concomitant]
  2. AMLODIPINE [Concomitant]
  3. MULTIVITAMIN (MULTIVITAMIN) [Concomitant]
  4. SIMVASTATIN [Suspect]
     Indication: HYPERCHOLESTEROLAEMIA
     Dosage: 20,00MG-1.00, TIMES PER 1.0DAYS, ORAL
     Route: 048
     Dates: start: 20100101
  5. BUMETANIDE [Concomitant]

REACTIONS (6)
  - WEIGHT DECREASED [None]
  - FLATULENCE [None]
  - VERTIGO [None]
  - VISION BLURRED [None]
  - FATIGUE [None]
  - ALOPECIA [None]
